FAERS Safety Report 5200305-0 (Version None)
Quarter: 2007Q1

REPORT INFORMATION
  Report Type: 
  Country: None (occurrence: None)
  Receive Date: 20070105
  Receipt Date: 20061229
  Transmission Date: 20070707
  Serious: Yes (Life-Threatening, Hospitalization)
  Sender: FDA-Public Use
  Company Number: JP-PFIZER INC-2006143093

PATIENT
  Age: 45 Year
  Sex: Male

DRUGS (4)
  1. NORVASC [Suspect]
     Indication: HYPERTENSION
     Route: 048
  2. OLMETEC [Suspect]
     Indication: HYPERTENSION
     Route: 048
  3. ARTIST [Suspect]
     Indication: HYPERTENSION
     Route: 048
  4. ANTIINFLAMMATORY/ANTIRHEUMATIC PRODUCTS [Concomitant]
     Route: 054

REACTIONS (8)
  - CEREBRAL INFARCTION [None]
  - DEPRESSED LEVEL OF CONSCIOUSNESS [None]
  - HAEMODIALYSIS [None]
  - HYPOTENSION [None]
  - OVERDOSE [None]
  - RENAL DISORDER [None]
  - SUICIDE ATTEMPT [None]
  - TREATMENT NONCOMPLIANCE [None]
